FAERS Safety Report 4406045-X (Version None)
Quarter: 2004Q3

REPORT INFORMATION
  Report Type: 
  Country: None (occurrence: None)
  Receive Date: 20040723
  Receipt Date: 20040329
  Transmission Date: 20050211
  Serious: No
  Sender: FDA-Public Use
  Company Number: US-GLAXOSMITHKLINE-A0504887A

PATIENT
  Age: 61 Year
  Sex: Male

DRUGS (9)
  1. AVANDIA [Suspect]
     Dosage: 4MG PER DAY
     Route: 048
     Dates: start: 20040323
  2. PAXIL [Suspect]
     Indication: DEPRESSION
     Dosage: 10MG ALTERNATE DAYS
     Route: 048
  3. WELLBUTRIN [Suspect]
     Indication: DEPRESSION
     Dosage: 300MG PER DAY
     Route: 048
     Dates: start: 20040311
  4. GLUCOVANCE [Concomitant]
  5. ASPIRIN [Concomitant]
  6. NEXIUM [Concomitant]
  7. VIOXX [Concomitant]
  8. FERROUS SULFATE TAB [Concomitant]
  9. LAMISIL [Concomitant]

REACTIONS (2)
  - NAUSEA [None]
  - VOMITING [None]
